FAERS Safety Report 13615705 (Version 1)
Quarter: 2017Q2

REPORT INFORMATION
  Report Type: Report from Study
  Country: US (occurrence: US)
  Receive Date: 20170606
  Receipt Date: 20170606
  Transmission Date: 20170830
  Serious: Yes (Life-Threatening)
  Sender: FDA-Public Use
  Company Number: US-BION-006366

PATIENT
  Age: 17 Year
  Sex: Male

DRUGS (7)
  1. LOPERAMIDE UNKNOWN PRODUCT [Suspect]
     Active Substance: LOPERAMIDE
  2. LORATADINE. [Suspect]
     Active Substance: LORATADINE
  3. GUAIFENESIN. [Suspect]
     Active Substance: GUAIFENESIN
  4. PARACETAMOL [Suspect]
     Active Substance: ACETAMINOPHEN
  5. IBUPROFEN UNKNOWN PRODUCT [Suspect]
     Active Substance: IBUPROFEN
  6. PROMETHAZINE [Suspect]
     Active Substance: PROMETHAZINE\PROMETHAZINE HYDROCHLORIDE
  7. DEXTROMETHORPHAN [Suspect]
     Active Substance: DEXTROMETHORPHAN

REACTIONS (11)
  - Lethargy [Unknown]
  - Suicide attempt [Unknown]
  - Vomiting [Unknown]
  - Agitation [Unknown]
  - Respiratory depression [Unknown]
  - Confusional state [Unknown]
  - Dyspnoea [Unknown]
  - Irritability [Unknown]
  - Somnolence [Unknown]
  - Conduction disorder [Unknown]
  - Electrolyte imbalance [Unknown]
